FAERS Safety Report 12123494 (Version 1)
Quarter: 2016Q1

REPORT INFORMATION
  Report Type: Spontaneous
  Country: US (occurrence: None)
  Receive Date: 20160226
  Receipt Date: 20160226
  Transmission Date: 20160526
  Serious: Yes (Hospitalization, Other)
  Sender: FDA-Public Use
  Company Number: None

PATIENT
  Age: 24 Year
  Sex: Male
  Weight: 74.39 kg

DRUGS (4)
  1. SULFADIAZINE. [Suspect]
     Active Substance: SULFADIAZINE
  2. DARAPRIM [Suspect]
     Active Substance: PYRIMETHAMINE
  3. LEUCOVORIN. [Suspect]
     Active Substance: LEUCOVORIN
  4. BACTRIM [Suspect]
     Active Substance: SULFAMETHOXAZOLE\TRIMETHOPRIM
     Indication: TOXOPLASMOSIS
     Dosage: 500 MG, 1 PILL 2XDAY, 2 PILL 2X A DAY, BY MOUTH
     Dates: start: 20151116, end: 20151219

REACTIONS (2)
  - Visual impairment [None]
  - Stevens-Johnson syndrome [None]

NARRATIVE: CASE EVENT DATE: 20151219
